FAERS Safety Report 9468818 (Version 1)
Quarter: 2013Q3

REPORT INFORMATION
  Report Type: Spontaneous
  Country: US (occurrence: None)
  Receive Date: 20130821
  Receipt Date: 20130821
  Transmission Date: 20140515
  Serious: No
  Sender: FDA-Public Use
  Company Number: None

PATIENT
  Age: 10 Year
  Sex: Male

DRUGS (2)
  1. ETOPOSIDE [Suspect]
     Dosage: 2.5 ML  QHS/BEDTIME  ORAL
     Route: 048
     Dates: start: 20130801, end: 20130812
  2. SODIUM CHLORIDE 0.9% [Suspect]
     Dosage: 2.5 ML  QHS/BEDTIME ORAL
     Route: 048
     Dates: start: 20130801, end: 20130812

REACTIONS (2)
  - Product deposit [None]
  - Product quality issue [None]
